FAERS Safety Report 12829464 (Version 2)
Quarter: 2020Q1

REPORT INFORMATION
  Report Type: Spontaneous
  Country: US (occurrence: US)
  Receive Date: 20161007
  Receipt Date: 20200205
  Transmission Date: 20200409
  Serious: No
  Sender: FDA-Public Use
  Company Number: US-SA-2016SA085631

PATIENT
  Age: 65 Year
  Sex: Female

DRUGS (2)
  1. AUBAGIO [Suspect]
     Active Substance: TERIFLUNOMIDE
     Indication: PULMONARY ARTERIAL HYPERTENSION
     Dosage: UNK UNK,UNK
     Route: 065
  2. AUBAGIO [Suspect]
     Active Substance: TERIFLUNOMIDE
     Indication: MULTIPLE SCLEROSIS
     Dosage: 14 MG, QD
     Route: 048
     Dates: start: 20190718

REACTIONS (2)
  - Product use in unapproved indication [Unknown]
  - Diarrhoea [Unknown]
